FAERS Safety Report 9906513 (Version 2)
Quarter: 2014Q1

REPORT INFORMATION
  Report Type: Spontaneous
  Country: US (occurrence: US)
  Receive Date: 20140218
  Receipt Date: 20140218
  Transmission Date: 20141002
  Serious: No
  Sender: FDA-Public Use
  Company Number: US-GILEAD-2012-0052046

PATIENT
  Sex: Female

DRUGS (3)
  1. LETAIRIS [Suspect]
     Indication: PULMONARY HYPERTENSION
     Dosage: 5 MG, UNK
     Route: 048
     Dates: start: 20120209, end: 20120315
  2. LETAIRIS [Suspect]
     Indication: PULMONARY HYPERTENSION
  3. LASIX                              /00032601/ [Concomitant]

REACTIONS (10)
  - Sinus headache [Recovering/Resolving]
  - Photophobia [Recovering/Resolving]
  - Pain [Recovering/Resolving]
  - Drug intolerance [Unknown]
  - Flushing [Recovering/Resolving]
  - Dyspnoea [Not Recovered/Not Resolved]
  - Headache [Recovering/Resolving]
  - Sinus congestion [Recovering/Resolving]
  - Oedema peripheral [Recovering/Resolving]
  - Nasal congestion [Unknown]
